FAERS Safety Report 23204888 (Version 2)
Quarter: 2024Q1

REPORT INFORMATION
  Report Type: Spontaneous
  Country: GB (occurrence: None)
  Receive Date: 20231120
  Receipt Date: 20240112
  Transmission Date: 20240409
  Serious: Yes (Death, Life-Threatening)
  Sender: FDA-Public Use
  Company Number: 2023A260358

PATIENT
  Age: 55 Year
  Sex: Male
  Weight: 119 kg

DRUGS (7)
  1. DAPAGLIFLOZIN [Suspect]
     Active Substance: DAPAGLIFLOZIN
     Route: 048
  2. ARIPIPRAZOLE [Concomitant]
     Active Substance: ARIPIPRAZOLE
  3. ATORVASTATIN [Concomitant]
     Active Substance: ATORVASTATIN
  4. FELODIPINE [Concomitant]
     Active Substance: FELODIPINE
  5. GLICLAZIDE [Concomitant]
     Active Substance: GLICLAZIDE
  6. METFORMIN [Concomitant]
     Active Substance: METFORMIN HYDROCHLORIDE
  7. RAMIPRIL [Concomitant]
     Active Substance: RAMIPRIL

REACTIONS (4)
  - Hyponatraemia [Fatal]
  - Euglycaemic diabetic ketoacidosis [Not Recovered/Not Resolved]
  - White blood cell count increased [Not Recovered/Not Resolved]
  - Confusional state [Not Recovered/Not Resolved]

NARRATIVE: CASE EVENT DATE: 20231110
